FAERS Safety Report 7641898-3 (Version None)
Quarter: 2011Q3

REPORT INFORMATION
  Report Type: 
  Country: None (occurrence: None)
  Receive Date: 20110728
  Receipt Date: 20110720
  Transmission Date: 20111222
  Serious: Yes (Hospitalization)
  Sender: FDA-Public Use
  Company Number: IL-B.I. PHARMACEUTICALS,INC./RIDGEFIELD-2011-DE-04106DE

PATIENT
  Sex: Male
  Weight: 102 kg

DRUGS (2)
  1. DABIGATRAN [Suspect]
     Indication: CEREBROVASCULAR ACCIDENT PROPHYLAXIS
     Route: 048
     Dates: start: 20070110, end: 20110203
  2. DABIGATRAN [Suspect]
     Indication: ATRIAL FIBRILLATION

REACTIONS (2)
  - BLADDER OBSTRUCTION [None]
  - BENIGN PROSTATIC HYPERPLASIA [None]
